FAERS Safety Report 17185659 (Version 5)
Quarter: 2019Q4

REPORT INFORMATION
  Report Type: Spontaneous
  Country: CH (occurrence: CH)
  Receive Date: 20191220
  Receipt Date: 20191230
  Transmission Date: 20200122
  Serious: Yes (Hospitalization, Other)
  Sender: FDA-Public Use
  Company Number: CH-PFIZER INC-2019546652

PATIENT
  Age: 81 Year
  Sex: Male

DRUGS (2)
  1. CORDARONE [Suspect]
     Active Substance: AMIODARONE HYDROCHLORIDE
     Indication: ATRIAL FIBRILLATION
     Dosage: 200 MG, 1X/DAY
     Route: 065
  2. ELIQUIS [Suspect]
     Active Substance: APIXABAN
     Indication: CEREBROVASCULAR ACCIDENT PROPHYLAXIS
     Dosage: 2.5 MG, 2X/DAY
     Route: 048

REACTIONS (16)
  - Dizziness [Unknown]
  - Haematocrit decreased [Unknown]
  - Hypertension [Unknown]
  - Dyspnoea exertional [Unknown]
  - Haemoglobin decreased [Unknown]
  - Gastrointestinal haemorrhage [Unknown]
  - Diverticulum [Unknown]
  - Cardiac valve disease [Unknown]
  - Cerebrovascular accident [Unknown]
  - Glomerular filtration rate abnormal [Unknown]
  - Chronic obstructive pulmonary disease [Unknown]
  - Melaena [Recovered/Resolved]
  - Faeces hard [Unknown]
  - Stress [Unknown]
  - Gastrooesophageal reflux disease [Unknown]
  - Obesity [Unknown]

NARRATIVE: CASE EVENT DATE: 20191005
